FAERS Safety Report 9161097 (Version 2)
Quarter: 2013Q3

REPORT INFORMATION
  Report Type: Spontaneous
  Country: US (occurrence: US)
  Receive Date: 20130313
  Receipt Date: 20130814
  Transmission Date: 20140515
  Serious: Yes (Other)
  Sender: FDA-Public Use
  Company Number: CHPA2011US09806

PATIENT
  Age: 58 Year
  Sex: Male

DRUGS (1)
  1. EX-LAX MAX STR LAX PILLS SENNA [Suspect]
     Indication: CONSTIPATION
     Dosage: 6 DF, QD
     Route: 048
     Dates: start: 200609

REACTIONS (9)
  - Neoplasm malignant [Unknown]
  - Vomiting [Not Recovered/Not Resolved]
  - Pyrexia [Not Recovered/Not Resolved]
  - Asthenia [Not Recovered/Not Resolved]
  - Constipation [Recovered/Resolved]
  - Abdominal pain upper [Unknown]
  - Therapeutic response unexpected [Unknown]
  - Overdose [Unknown]
  - Incorrect drug administration duration [Unknown]
